FAERS Safety Report 10876433 (Version 1)
Quarter: 2015Q1

REPORT INFORMATION
  Report Type: Spontaneous
  Country: CH (occurrence: CH)
  Receive Date: 20150228
  Receipt Date: 20150228
  Transmission Date: 20150721
  Serious: Yes (Death, Congenital Anomaly, Other)
  Sender: FDA-Public Use
  Company Number: PHHY2015CH022925

PATIENT

DRUGS (1)
  1. TERBINAFINE [Suspect]
     Active Substance: TERBINAFINE
     Indication: ONYCHOMYCOSIS
     Dosage: MATERNAL DOSE 250 MG
     Route: 064
     Dates: start: 2013, end: 2014

REACTIONS (1)
  - Congenital heart valve disorder [Fatal]

NARRATIVE: CASE EVENT DATE: 2014
